FAERS Safety Report 10387887 (Version 1)
Quarter: 2014Q1

REPORT INFORMATION
  Report Type: Spontaneous
  Country: US (occurrence: None)
  Receive Date: 20140306
  Receipt Date: 20140306
  Transmission Date: 20141002
  Serious: Yes (Hospitalization)
  Sender: FDA-Public Use
  Company Number: 163-21880-13121268

PATIENT
  Age: 66 Year
  Sex: Male

DRUGS (4)
  1. REVLIMID (LENALIDOMIDE) (10 MILLIGRAM, CAPSULES) [Suspect]
     Indication: PLASMA CELL MYELOMA
     Dosage: 14 IN 28 D
     Route: 048
     Dates: start: 201308
  2. COUMADIN (WARFARIN SODIUM) [Concomitant]
  3. CARVEDILOL (CARVEDILOL) [Concomitant]
  4. ATACAND (CANDESARTAN CILEXETIL) [Concomitant]

REACTIONS (1)
  - Pneumonia [None]
